FAERS Safety Report 21404281 (Version 2)
Quarter: 2022Q4

REPORT INFORMATION
  Report Type: Spontaneous
  Country: US (occurrence: US)
  Receive Date: 20221003
  Receipt Date: 20221029
  Transmission Date: 20230113
  Serious: No
  Sender: FDA-Public Use
  Company Number: US-SA-SAC20220928000969

PATIENT
  Age: 57 Year
  Sex: Female
  Weight: 82 kg

DRUGS (4)
  1. DUPIXENT [Suspect]
     Active Substance: DUPILUMAB
     Indication: Asthma
     Dosage: 300 MG, QOW
     Route: 058
     Dates: start: 202103
  2. ALBUTEROL [Concomitant]
     Active Substance: ALBUTEROL
     Indication: Inhalation therapy
  3. NASONEX [Concomitant]
     Active Substance: MOMETASONE FUROATE
  4. PRILOSEC [Concomitant]
     Active Substance: OMEPRAZOLE MAGNESIUM
     Indication: Gastrooesophageal reflux disease

REACTIONS (4)
  - Weight increased [Not Recovered/Not Resolved]
  - Middle insomnia [Not Recovered/Not Resolved]
  - Asthma [Not Recovered/Not Resolved]
  - Accidental exposure to product [Unknown]
